FAERS Safety Report 5361982-7 (Version None)
Quarter: 2007Q2

REPORT INFORMATION
  Report Type: 
  Country: None (occurrence: None)
  Receive Date: 20070619
  Receipt Date: 20070605
  Transmission Date: 20071010
  Serious: Yes (Disabling, Other)
  Sender: FDA-Public Use
  Company Number: FR-ELI_LILLY_AND_COMPANY-FR200706001720

PATIENT
  Age: 80 Year
  Sex: Female
  Weight: 65 kg

DRUGS (6)
  1. FORTEO [Suspect]
     Indication: OSTEOPOROSIS
  2. CARDENSIEL [Concomitant]
     Indication: HYPERTENSION
     Dates: start: 20040101
  3. FLECAINIDE ACETATE [Concomitant]
     Indication: ARRHYTHMIA
     Dates: start: 20040101
  4. FOSAVANCE [Concomitant]
     Indication: OSTEOPOROSIS
     Dates: start: 20061001
  5. IMOVANE [Concomitant]
     Indication: INSOMNIA
     Dates: start: 20040101
  6. LAROXYL [Concomitant]
     Indication: DEPRESSION
     Dates: start: 20040101

REACTIONS (5)
  - BASOSQUAMOUS CARCINOMA OF SKIN [None]
  - DIABETES MELLITUS NON-INSULIN-DEPENDENT [None]
  - HERPES ZOSTER [None]
  - MALIGNANT MELANOMA [None]
  - SENSORIMOTOR DISORDER [None]
